FAERS Safety Report 10551620 (Version 3)
Quarter: 2014Q4

REPORT INFORMATION
  Report Type: Spontaneous
  Country: US (occurrence: None)
  Receive Date: 20141027
  Receipt Date: 20141215
  Transmission Date: 20150529
  Serious: Yes (Disabling, Other)
  Sender: FDA-Public Use
  Company Number: 2014-US-013547

PATIENT
  Sex: Female

DRUGS (6)
  1. XYREM [Suspect]
     Active Substance: SODIUM OXYBATE
     Indication: NARCOLEPSY
     Route: 048
     Dates: start: 200501
  2. METHYLPHENIDATE (METHYLPHENIDATE HYDROCHLORIDE) [Concomitant]
  3. XYREM [Suspect]
     Active Substance: SODIUM OXYBATE
     Indication: SLEEP DISORDER
     Route: 048
     Dates: start: 200501
  4. XYREM [Suspect]
     Active Substance: SODIUM OXYBATE
     Indication: SOMNOLENCE
     Route: 048
     Dates: start: 200501
  5. METHYLIN (METHYLPHENIDATE HYDROCHLORIDE) [Concomitant]
  6. XYREM [Suspect]
     Active Substance: SODIUM OXYBATE
     Indication: CATAPLEXY
     Route: 048
     Dates: start: 200501

REACTIONS (8)
  - Migraine [None]
  - Headache [None]
  - Sleep apnoea syndrome [None]
  - Ehlers-Danlos syndrome [None]
  - Depression [None]
  - Pain [None]
  - Unevaluable event [None]
  - Drug ineffective [None]

NARRATIVE: CASE EVENT DATE: 2012
